FAERS Safety Report 15346100 (Version 1)
Quarter: 2018Q3

REPORT INFORMATION
  Report Type: Spontaneous
  Country: US (occurrence: US)
  Receive Date: 20180904
  Receipt Date: 20180904
  Transmission Date: 20181010
  Serious: No
  Sender: FDA-Public Use
  Company Number: US-BRISTOL-MYERS SQUIBB COMPANY-BMS-2018-080174

PATIENT
  Age: 47 Year
  Sex: Female

DRUGS (1)
  1. ELIQUIS [Suspect]
     Active Substance: APIXABAN
     Indication: VENOUS THROMBOSIS
     Dosage: 5 MG, BID
     Route: 048
     Dates: start: 20170806, end: 20180208

REACTIONS (5)
  - Insomnia [Unknown]
  - Affect lability [Unknown]
  - Trichorrhexis [Unknown]
  - Depression [Unknown]
  - Alopecia [Unknown]

NARRATIVE: CASE EVENT DATE: 201806
